FAERS Safety Report 7906466 (Version 21)
Quarter: 2017Q3

REPORT INFORMATION
  Report Type: Report from Study
  Country: CA (occurrence: CA)
  Receive Date: 20110420
  Receipt Date: 20170918
  Transmission Date: 20171128
  Serious: Yes (Hospitalization, Other)
  Sender: FDA-Public Use
  Company Number: PHHY2010CA49349

PATIENT
  Age: 62 Year
  Sex: Male

DRUGS (14)
  1. COUMADIN [Concomitant]
     Active Substance: WARFARIN SODIUM
     Indication: PRODUCT USED FOR UNKNOWN INDICATION
     Route: 065
  2. HYDROCHLOROTHIAZIDE. [Concomitant]
     Active Substance: HYDROCHLOROTHIAZIDE
     Indication: PRODUCT USED FOR UNKNOWN INDICATION
     Route: 065
  3. SANDOSTATIN LAR DEPOT [Suspect]
     Active Substance: OCTREOTIDE ACETATE
     Indication: ACROMEGALY
     Dosage: 10 MG, QMO
     Route: 030
     Dates: start: 20100217
  4. CABERGOLINE. [Concomitant]
     Active Substance: CABERGOLINE
     Indication: PRODUCT USED FOR UNKNOWN INDICATION
     Dosage: 6 MG, UNK
     Route: 065
  5. TIAZAC [Concomitant]
     Active Substance: DILTIAZEM HYDROCHLORIDE
     Indication: PRODUCT USED FOR UNKNOWN INDICATION
     Route: 065
  6. METFORMIN [Concomitant]
     Active Substance: METFORMIN HYDROCHLORIDE
     Indication: PRODUCT USED FOR UNKNOWN INDICATION
     Route: 065
  7. SANDOSTATIN LAR DEPOT [Suspect]
     Active Substance: OCTREOTIDE ACETATE
     Dosage: 30 MG, QMO
     Route: 030
     Dates: start: 201104
  8. SANDOSTATIN LAR DEPOT [Suspect]
     Active Substance: OCTREOTIDE ACETATE
     Dosage: 20 MG, QMO
     Route: 030
     Dates: start: 20130917
  9. SANDOSTATIN LAR DEPOT [Suspect]
     Active Substance: OCTREOTIDE ACETATE
     Dosage: 30 MG, QMO
     Route: 030
     Dates: start: 20100521
  10. SANDOSTATIN LAR DEPOT [Suspect]
     Active Substance: OCTREOTIDE ACETATE
     Dosage: 20 MG, QMO (EVERY 4 WEEKS)
     Route: 030
     Dates: start: 20100625
  11. SANDOSTATIN LAR DEPOT [Suspect]
     Active Substance: OCTREOTIDE ACETATE
     Dosage: 30 MG, QMO (ONCE A MONTH)
     Route: 030
     Dates: start: 20100826
  12. SANDOSTATIN LAR DEPOT [Suspect]
     Active Substance: OCTREOTIDE ACETATE
     Dosage: 10 MG, QMO
     Route: 030
     Dates: start: 20140917
  13. COVERSYL [Concomitant]
     Active Substance: PERINDOPRIL
     Indication: PRODUCT USED FOR UNKNOWN INDICATION
     Route: 065
  14. NOVO-SPIROTON [Concomitant]
     Indication: PRODUCT USED FOR UNKNOWN INDICATION
     Route: 065

REACTIONS (36)
  - Blood pressure systolic increased [Unknown]
  - International normalised ratio increased [Unknown]
  - Influenza [Unknown]
  - Injection site pain [Unknown]
  - Blood pressure increased [Unknown]
  - Pneumonia [Unknown]
  - Balance disorder [Unknown]
  - Muscle disorder [Unknown]
  - Diarrhoea [Unknown]
  - Labyrinthitis [Unknown]
  - Fluid retention [Unknown]
  - Arrhythmia [Unknown]
  - Prostate cancer [Unknown]
  - Gait disturbance [Unknown]
  - Vomiting [Unknown]
  - Asthenia [Unknown]
  - Dizziness [Recovering/Resolving]
  - Inner ear disorder [Unknown]
  - Fall [Unknown]
  - Pulmonary oedema [Unknown]
  - Ear haemorrhage [Unknown]
  - Fatigue [Unknown]
  - Heart rate decreased [Unknown]
  - Central nervous system lesion [Unknown]
  - Skin infection [Unknown]
  - Muscle strain [Unknown]
  - Nasopharyngitis [Unknown]
  - Cough [Unknown]
  - Nausea [Unknown]
  - Vertigo [Unknown]
  - Vestibular disorder [Unknown]
  - Arthralgia [Recovered/Resolved]
  - Chills [Unknown]
  - Back pain [Unknown]
  - Blood urine present [Unknown]
  - Needle issue [Unknown]

NARRATIVE: CASE EVENT DATE: 2012
